FAERS Safety Report 12256485 (Version 3)
Quarter: 2016Q3

REPORT INFORMATION
  Report Type: Report from Study
  Country: US (occurrence: US)
  Receive Date: 20160412
  Receipt Date: 20160721
  Transmission Date: 20161109
  Serious: Yes (Other)
  Sender: FDA-Public Use
  Company Number: US-AMGEN-USASL2016042727

PATIENT
  Age: 63 Year
  Sex: Male

DRUGS (3)
  1. ENBREL [Suspect]
     Active Substance: ETANERCEPT
     Indication: RHEUMATOID ARTHRITIS
     Dosage: 50 MG, ONCE WEEKLY
     Route: 058
     Dates: start: 201602
  2. MELOXICAM. [Concomitant]
     Active Substance: MELOXICAM
     Dosage: UNK
  3. LISINOPRIL. [Concomitant]
     Active Substance: LISINOPRIL
     Dosage: UNK

REACTIONS (10)
  - Lip swelling [Unknown]
  - Pleurisy [Unknown]
  - Arthralgia [Unknown]
  - Pneumonia [Unknown]
  - Muscle tightness [Unknown]
  - Infection [Unknown]
  - Condition aggravated [Unknown]
  - Gait disturbance [Unknown]
  - Somnolence [Unknown]
  - Myalgia [Unknown]

NARRATIVE: CASE EVENT DATE: 2016
